FAERS Safety Report 14333075 (Version 6)
Quarter: 2018Q1

REPORT INFORMATION
  Report Type: Spontaneous
  Country: US (occurrence: US)
  Receive Date: 20171228
  Receipt Date: 20180223
  Transmission Date: 20180509
  Serious: Yes (Other)
  Sender: FDA-Public Use
  Company Number: US-ASTELLAS-2017US050696

PATIENT
  Sex: Male

DRUGS (24)
  1. VITAMIN C [Concomitant]
     Active Substance: ASCORBIC ACID
     Indication: PRODUCT USED FOR UNKNOWN INDICATION
     Dosage: 500 MG, ONCE DAILY IN AM
     Route: 065
  2. NIACIN. [Concomitant]
     Active Substance: NIACIN
     Indication: CARDIOVASCULAR DISORDER
     Route: 065
  3. GARLIC                             /01570501/ [Concomitant]
     Active Substance: GARLIC
     Indication: GENERAL PHYSICAL HEALTH DETERIORATION
     Dosage: 650 MG, ONCE DAILY IN EVENING
     Route: 065
  4. CALCIUM + D3                       /00944201/ [Concomitant]
     Active Substance: CALCIUM CARBONATE\CHOLECALCIFEROL
     Indication: GENERAL PHYSICAL HEALTH DETERIORATION
     Dosage: 600 MG, 800 IU ONCE DAILY IN AM AND IN EVENING
     Route: 065
  5. PRASUGREL. [Concomitant]
     Active Substance: PRASUGREL
     Indication: CARDIOVASCULAR DISORDER
     Route: 065
  6. CALCIUM [Concomitant]
     Active Substance: CALCIUM
     Indication: PRODUCT USED FOR UNKNOWN INDICATION
     Dosage: UNK UNK, UNKNOWN FREQ.
     Route: 065
  7. PROBIOTIC                          /06395501/ [Concomitant]
     Active Substance: BIFIDOBACTERIUM ANIMALIS LACTIS
     Indication: GENERAL PHYSICAL HEALTH DETERIORATION
     Dosage: 1 DF, ONCE DAILY IN EVENING
     Route: 065
  8. VITAMIN E                          /00110501/ [Concomitant]
     Active Substance: TOCOPHEROL
     Indication: GENERAL PHYSICAL HEALTH DETERIORATION
     Dosage: 400 IU, ONCE DAILY IN EVENING
     Route: 065
  9. XTANDI [Suspect]
     Active Substance: ENZALUTAMIDE
     Indication: PROSTATE CANCER
     Dosage: 160 MG, ONCE DAILY (EARLIER IN AT EVENING GRADUALLY CHANGED TO 10 PM)
     Route: 048
     Dates: start: 20171103, end: 20180103
  10. OMEGA 3 FISH OIL                   /06852001/ [Concomitant]
     Indication: GENERAL PHYSICAL HEALTH DETERIORATION
     Dosage: 1200 MG, ONCE DAILY IN AM AND 1 IN EVENING
     Route: 065
  11. DIOVAN [Concomitant]
     Active Substance: VALSARTAN
     Indication: CARDIOVASCULAR DISORDER
     Dosage: 80 MG, ONCE DAILY IN AM
     Route: 065
  12. LUPRON [Concomitant]
     Active Substance: LEUPROLIDE ACETATE
     Dosage: UNK UNK, EVERY 6 MONTHS
     Route: 030
  13. PRAVACHOL [Concomitant]
     Active Substance: PRAVASTATIN SODIUM
     Indication: PRODUCT USED FOR UNKNOWN INDICATION
     Dosage: UNK UNK, UNKNOWN FREQ.
     Route: 065
  14. SELENIUM [Concomitant]
     Active Substance: SELENIUM
     Indication: GENERAL PHYSICAL HEALTH DETERIORATION
     Dosage: 200 ?G, ONCE DAILY IN EVENING
     Route: 065
  15. GLUCOSAMINE HCL [Concomitant]
     Active Substance: GLUCOSAMINE
     Indication: GENERAL PHYSICAL HEALTH DETERIORATION
     Dosage: 1500 MG, ONCE DAILY IN AM
     Route: 065
  16. FAMOTIDINE. [Concomitant]
     Active Substance: FAMOTIDINE
     Indication: GASTRITIS
     Route: 065
  17. FLAXSEED [Concomitant]
     Active Substance: FLAX SEED
     Indication: GENERAL PHYSICAL HEALTH DETERIORATION
     Dosage: 1300 MG, ONCE DAILY IN EVENING
     Route: 065
  18. PEPCID                             /00305201/ [Concomitant]
     Active Substance: ALUMINUM HYDROXIDE\MAGNESIUM CARBONATE
     Indication: GASTRITIS
     Dosage: UNK UNK, AT BEDTIME
     Route: 065
  19. ZOCOR [Concomitant]
     Active Substance: SIMVASTATIN
     Indication: CARDIOVASCULAR DISORDER
     Route: 065
  20. LUPRON [Concomitant]
     Active Substance: LEUPROLIDE ACETATE
     Indication: PROSTATE CANCER
     Dosage: UNK UNK, EVERY 4 MONTHS FOR YEARS
     Route: 030
  21. HYDROCHLOROTHIAZIDE. [Concomitant]
     Active Substance: HYDROCHLOROTHIAZIDE
     Indication: CARDIOVASCULAR DISORDER
     Route: 065
  22. VITAMIN B COMPLEX [Concomitant]
     Active Substance: CYANOCOBALAMIN\DEXPANTHENOL\NIACINAMIDE\PYRIDOXINE HYDROCHLORIDE\RIBOFLAVIN 5^-PHOSPHATE SODIUM\THIAMINE HYDROCHLORIDE\VITAMIN B COMPLEX
     Indication: GENERAL PHYSICAL HEALTH DETERIORATION
     Dosage: 1 DF, ONCE DAILY IN AM
     Route: 065
  23. ASPIRIN. [Concomitant]
     Active Substance: ASPIRIN
     Indication: CARDIOVASCULAR DISORDER
     Route: 065
  24. LUPRON [Concomitant]
     Active Substance: LEUPROLIDE ACETATE
     Dosage: UNK UNK, EVERY 6 MONTHS
     Route: 030
     Dates: start: 20180131

REACTIONS (15)
  - Lacrimation increased [Recovered/Resolved]
  - Dizziness [Recovered/Resolved]
  - Fatigue [Recovered/Resolved]
  - Peripheral swelling [Recovered/Resolved]
  - Musculoskeletal pain [Not Recovered/Not Resolved]
  - Neuropathy peripheral [Not Recovered/Not Resolved]
  - Sleep disorder [Recovered/Resolved]
  - Arthralgia [Recovered/Resolved]
  - Back pain [Recovered/Resolved]
  - Abnormal dreams [Recovered/Resolved]
  - Rhinorrhoea [Recovered/Resolved]
  - Decreased interest [Recovered/Resolved]
  - Pain in extremity [Recovered/Resolved]
  - Memory impairment [Not Recovered/Not Resolved]
  - Feeling abnormal [Recovered/Resolved]
